FAERS Safety Report 13449802 (Version 1)
Quarter: 2017Q2

REPORT INFORMATION
  Report Type: Spontaneous
  Country: US (occurrence: US)
  Receive Date: 20170417
  Receipt Date: 20170417
  Transmission Date: 20170830
  Serious: Yes (Other)
  Sender: FDA-Public Use
  Company Number: US-BION-20160536

PATIENT
  Age: 73 Year
  Sex: Male
  Weight: 86.18 kg

DRUGS (2)
  1. OXYCODONE ACETAMINOPHEN [Concomitant]
     Active Substance: ACETAMINOPHEN\OXYCODONE HYDROCHLORIDE
     Indication: BACK PAIN
  2. ALEVE [Suspect]
     Active Substance: NAPROXEN SODIUM
     Indication: ANALGESIC THERAPY
     Dosage: 2 DF AS NEEDED
     Route: 048
     Dates: start: 2016

REACTIONS (2)
  - Drug effect incomplete [Unknown]
  - Hypertension [Unknown]

NARRATIVE: CASE EVENT DATE: 2016
